FAERS Safety Report 7772434-9 (Version None)
Quarter: 2011Q3

REPORT INFORMATION
  Report Type: 
  Country: None (occurrence: None)
  Receive Date: 20110922
  Receipt Date: 20110826
  Transmission Date: 20111222
  Serious: Yes (Other)
  Sender: FDA-Public Use
  Company Number: PHHY2011GB81622

PATIENT
  Sex: Female

DRUGS (1)
  1. PROPAIN [Suspect]
     Dosage: 6 DF, DAILY
     Route: 048

REACTIONS (2)
  - DRUG DEPENDENCE [None]
  - INTENTIONAL OVERDOSE [None]
